FAERS Safety Report 17314866 (Version 1)
Quarter: 2020Q1

REPORT INFORMATION
  Report Type: Spontaneous
  Country: US (occurrence: US)
  Receive Date: 20200123
  Receipt Date: 20200123
  Transmission Date: 20200409
  Serious: Yes (Other)
  Sender: FDA-Public Use
  Company Number: None

PATIENT
  Age: 55 Year
  Sex: Female
  Weight: 78.3 kg

DRUGS (1)
  1. LAURA MERCIER TINTED MOISTURIZER - ILLUMINATING BROAD SPECTRUM SPF 20 SUNSCREEN [Suspect]
     Active Substance: AVOBENZONE\OCTINOXATE
     Indication: DRY SKIN PROPHYLAXIS
     Dosage: ?          QUANTITY:1 MOISTURIZER;?
     Route: 061
     Dates: start: 20200112, end: 20200118

REACTIONS (1)
  - Skin disorder [None]

NARRATIVE: CASE EVENT DATE: 20200115
